FAERS Safety Report 7597666-4 (Version None)
Quarter: 2011Q3

REPORT INFORMATION
  Report Type: 
  Country: None (occurrence: None)
  Receive Date: 20110708
  Receipt Date: 20110701
  Transmission Date: 20111222
  Serious: Yes (Hospitalization, Other)
  Sender: FDA-Public Use
  Company Number: BR-ABBOTT-11P-020-0836151-00

PATIENT
  Sex: Female
  Weight: 75 kg

DRUGS (9)
  1. METRONIDAZOLE [Concomitant]
     Indication: HAEMATOCHEZIA
     Route: 048
  2. METRONIDAZOLE [Concomitant]
     Indication: PROPHYLAXIS
  3. HUMIRA [Suspect]
     Route: 058
  4. CLOMIPRAMINE HYDROCHLORIDE [Concomitant]
     Indication: DEPRESSION
     Route: 048
  5. HUMIRA [Suspect]
     Route: 058
  6. LOPERAMIDE [Concomitant]
     Indication: DIARRHOEA
     Route: 048
  7. HUMIRA [Suspect]
     Indication: CROHN'S DISEASE
     Dosage: INDUCTION DOSE
     Route: 058
     Dates: start: 20090301, end: 20090301
  8. CLONAZEPAM [Concomitant]
     Indication: INSOMNIA
     Route: 048
  9. AMITRIPTYLINE HCL [Concomitant]
     Indication: DEPRESSION
     Route: 048
     Dates: end: 20110601

REACTIONS (2)
  - DEPRESSION [None]
  - GASTROINTESTINAL INFECTION [None]
